FAERS Safety Report 18388787 (Version 2)
Quarter: 2020Q4

REPORT INFORMATION
  Report Type: Spontaneous
  Country: JP (occurrence: JP)
  Receive Date: 20201015
  Receipt Date: 20201029
  Transmission Date: 20210114
  Serious: Yes (Death, Hospitalization, Other)
  Sender: FDA-Public Use
  Company Number: JP-JNJFOC-20200811673

PATIENT
  Age: 69 Year
  Sex: Male
  Weight: 45 kg

DRUGS (1)
  1. ERLEADA [Suspect]
     Active Substance: APALUTAMIDE
     Indication: PROSTATE CANCER METASTATIC
     Route: 048
     Dates: start: 20200626, end: 20200804

REACTIONS (5)
  - Femur fracture [Not Recovered/Not Resolved]
  - Fall [Unknown]
  - Interstitial lung disease [Recovering/Resolving]
  - Rash [Recovering/Resolving]
  - Condition aggravated [Fatal]

NARRATIVE: CASE EVENT DATE: 2020
